FAERS Safety Report 11584330 (Version 1)
Quarter: 2015Q4

REPORT INFORMATION
  Report Type: Spontaneous
  Country: US (occurrence: US)
  Receive Date: 20151001
  Receipt Date: 20151001
  Transmission Date: 20160304
  Serious: Yes (Hospitalization, Other)
  Sender: FDA-Public Use
  Company Number: US-BAUSCH-BL-2015-019068

PATIENT
  Age: 75 Year
  Sex: Male
  Weight: 68.1 kg

DRUGS (1)
  1. PROVENGE [Suspect]
     Active Substance: SIPULEUCEL-T
     Indication: PRODUCT USED FOR UNKNOWN INDICATION
     Route: 042
     Dates: start: 20150720, end: 20150720

REACTIONS (4)
  - Hospitalisation [Unknown]
  - Hypertension [Unknown]
  - Restlessness [Unknown]
  - Chest pain [Unknown]

NARRATIVE: CASE EVENT DATE: 2015
